FAERS Safety Report 4784938-1 (Version None)
Quarter: 2005Q3

REPORT INFORMATION
  Report Type: 
  Country: None (occurrence: None)
  Receive Date: 20050928
  Receipt Date: 20050912
  Transmission Date: 20060218
  Serious: Yes (Death, Other)
  Sender: FDA-Public Use
  Company Number: US_0502113095

PATIENT
  Sex: Female
  Weight: 61 kg

DRUGS (7)
  1. ZYPREXA [Suspect]
     Indication: SCHIZOAFFECTIVE DISORDER
     Dosage: 20 MG AT BEDTIME
     Route: 048
     Dates: start: 19980513
  2. DICYCLOMINE [Concomitant]
  3. HALDOL DECANOATE               (HALOPERIDOL DECANOATE) [Concomitant]
  4. MELLARIL [Concomitant]
  5. ADALAT                (NIFEDIPINE PA) [Concomitant]
  6. CIMETIDINE [Concomitant]
  7. NIFEDIPINE [Concomitant]

REACTIONS (5)
  - CARDIAC ARREST [None]
  - DIABETES MELLITUS [None]
  - HYPERTENSIVE HEART DISEASE [None]
  - LOSS OF CONSCIOUSNESS [None]
  - TREATMENT NONCOMPLIANCE [None]
